FAERS Safety Report 6090767-1 (Version None)
Quarter: 2009Q1

REPORT INFORMATION
  Report Type: 
  Country: None (occurrence: None)
  Receive Date: 20090224
  Receipt Date: 20090129
  Transmission Date: 20090719
  Serious: No
  Sender: FDA-Public Use
  Company Number: US-ABBOTT-09P-163-0501073-00

PATIENT
  Sex: Female
  Weight: 74.91 kg

DRUGS (1)
  1. SIMCOR [Suspect]
     Indication: HYPERTRIGLYCERIDAEMIA
     Dosage: 500/20MG
     Route: 048
     Dates: start: 20081201, end: 20090101

REACTIONS (4)
  - BURNING SENSATION [None]
  - FACIAL PALSY [None]
  - FEELING HOT [None]
  - MUSCLE TIGHTNESS [None]
